FAERS Safety Report 5134406-2 (Version None)
Quarter: 2006Q4

REPORT INFORMATION
  Report Type: 
  Country: None (occurrence: None)
  Receive Date: 20061025
  Receipt Date: 20060825
  Transmission Date: 20070319
  Serious: Yes (Hospitalization, Other)
  Sender: FDA-Public Use
  Company Number: FRWYE784825AUG06

PATIENT
  Sex: Male

DRUGS (1)
  1. ENBREL [Suspect]
     Indication: SPONDYLOARTHROPATHY
     Route: 058
     Dates: start: 20041116, end: 20060101

REACTIONS (7)
  - ASCITES [None]
  - BLOOD 25-HYDROXYCHOLECALCIFEROL DECREASED [None]
  - CONDITION AGGRAVATED [None]
  - GASTRIC CANCER [None]
  - HEPATIC CIRRHOSIS [None]
  - MALABSORPTION [None]
  - URINE CALCIUM DECREASED [None]
